FAERS Safety Report 6413072-X (Version None)
Quarter: 2009Q4

REPORT INFORMATION
  Report Type: 
  Country: None (occurrence: None)
  Receive Date: 20091023
  Receipt Date: 20091023
  Transmission Date: 20100525
  Serious: Yes (Life-Threatening)
  Sender: FDA-Public Use
  Company Number: None

PATIENT

DRUGS (1)
  1. NITROFURANTOIN MACROCRYSTALLINE [Suspect]
     Indication: CYSTITIS
     Dosage: 3X A DAY ONLY 1 PILL TAKEN
     Dates: start: 20091003, end: 20091003

REACTIONS (5)
  - APHASIA [None]
  - CAPSULE ISSUE [None]
  - CHOKING [None]
  - PRODUCT QUALITY ISSUE [None]
  - SENSATION OF FOREIGN BODY [None]
